FAERS Safety Report 20673198 (Version 1)
Quarter: 2022Q2

REPORT INFORMATION
  Report Type: Report from Study
  Country: CA (occurrence: CA)
  Receive Date: 20220405
  Receipt Date: 20220405
  Transmission Date: 20220720
  Serious: Yes (Other)
  Sender: FDA-Public Use
  Company Number: None

PATIENT
  Age: 50 Year
  Sex: Male

DRUGS (8)
  1. METHOTREXATE [Suspect]
     Active Substance: METHOTREXATE
     Indication: Product used for unknown indication
  2. SECUKINUMAB [Suspect]
     Active Substance: SECUKINUMAB
     Indication: Psoriasis
     Route: 058
  3. ACITRETIN [Concomitant]
     Active Substance: ACITRETIN
  4. BETADERM [Concomitant]
     Active Substance: BETAMETHASONE VALERATE
  5. HUMIRA [Concomitant]
     Active Substance: ADALIMUMAB
     Route: 058
  6. MOMETASONE FUROATE [Concomitant]
     Active Substance: MOMETASONE FUROATE
  7. SORIATANE [Concomitant]
     Active Substance: ACITRETIN
  8. STELARA [Concomitant]
     Active Substance: USTEKINUMAB
     Route: 058

REACTIONS (13)
  - Back disorder [Unknown]
  - Emotional distress [Unknown]
  - Exercise lack of [Unknown]
  - Injection site haemorrhage [Unknown]
  - Pain [Unknown]
  - Pain of skin [Unknown]
  - Pericarditis [Unknown]
  - Pruritus [Unknown]
  - Psoriasis [Unknown]
  - Skin plaque [Unknown]
  - Sleep apnoea syndrome [Unknown]
  - Weight decreased [Unknown]
  - Weight increased [Unknown]
